FAERS Safety Report 22872865 (Version 3)
Quarter: 2024Q1

REPORT INFORMATION
  Report Type: Spontaneous
  Country: JP (occurrence: JP)
  Receive Date: 20230828
  Receipt Date: 20240222
  Transmission Date: 20240410
  Serious: Yes (Other)
  Sender: FDA-Public Use
  Company Number: JP-BEH-2023162430

PATIENT
  Age: 3 Decade
  Sex: Male
  Weight: 70 kg

DRUGS (2)
  1. IDELVION [Suspect]
     Active Substance: COAGULATION FACTOR IX RECOMBINANT HUMAN
     Indication: Haemorrhage prophylaxis
     Dosage: 5500 INTERNATIONAL UNIT, FREQUENCY: EVERY 10 DAYS
     Route: 042
     Dates: start: 2019, end: 20230621
  2. IDELVION [Suspect]
     Active Substance: COAGULATION FACTOR IX RECOMBINANT HUMAN
     Indication: Haemorrhage prophylaxis
     Dosage: 5500 INTERNATIONAL UNIT, FREQUENCY: EVERY 10 DAYS
     Route: 042
     Dates: start: 2019, end: 20230621

REACTIONS (4)
  - Haemorrhage [Recovered/Resolved]
  - Pain [Recovered/Resolved]
  - No adverse event [Unknown]
  - Incorrect dose administered [Unknown]

NARRATIVE: CASE EVENT DATE: 20230601
